FAERS Safety Report 20212852 (Version 1)
Quarter: 2021Q4

REPORT INFORMATION
  Report Type: Spontaneous
  Country: PL (occurrence: PL)
  Receive Date: 20211221
  Receipt Date: 20211221
  Transmission Date: 20220303
  Serious: Yes (Other)
  Sender: FDA-Public Use
  Company Number: PL-002147023-NVSC2021PL254968

PATIENT
  Age: 44 Year
  Sex: Female

DRUGS (4)
  1. IMATINIB [Suspect]
     Active Substance: IMATINIB
     Indication: Chronic myeloid leukaemia
     Dosage: 200 MG
     Route: 065
  2. IMATINIB [Suspect]
     Active Substance: IMATINIB
     Dosage: 100 MG
     Route: 065
     Dates: end: 200904
  3. IMATINIB [Suspect]
     Active Substance: IMATINIB
     Dosage: 400 MG
     Route: 065
     Dates: start: 2008
  4. IMATINIB [Suspect]
     Active Substance: IMATINIB
     Dosage: 300 MG
     Route: 065

REACTIONS (3)
  - Anaemia [Recovering/Resolving]
  - Drug ineffective [Unknown]
  - Drug intolerance [Unknown]
